FAERS Safety Report 22701583 (Version 8)
Quarter: 2023Q4

REPORT INFORMATION
  Report Type: Spontaneous
  Country: US (occurrence: US)
  Receive Date: 20230713
  Receipt Date: 20231031
  Transmission Date: 20240110
  Serious: No
  Sender: FDA-Public Use
  Company Number: US-PFIZER INC-202300245642

PATIENT
  Age: 11 Year
  Sex: Male
  Weight: 34.47 kg

DRUGS (4)
  1. GENOTROPIN [Suspect]
     Active Substance: SOMATROPIN
     Indication: Growth hormone deficiency
     Dosage: 1.6 MG, DAILY
     Route: 058
     Dates: start: 202306
  2. ADVAIR HFA [Concomitant]
     Active Substance: FLUTICASONE PROPIONATE\SALMETEROL XINAFOATE
     Indication: Post-acute COVID-19 syndrome
     Dosage: 45 UG, 2X/DAY [45 MICROGRAMS 2 PUFF TWICE A DAY]
     Route: 045
     Dates: start: 2021
  3. FOCALIN [Concomitant]
     Active Substance: DEXMETHYLPHENIDATE HYDROCHLORIDE
     Indication: Sensory processing disorder
     Dosage: 10 MG, DAILY
     Dates: start: 202304
  4. ALBUTEROL SULFATE [Concomitant]
     Active Substance: ALBUTEROL SULFATE
     Dosage: UNK, AS NEEDED
     Route: 055

REACTIONS (2)
  - Product solubility abnormal [Unknown]
  - Liquid product physical issue [Unknown]

NARRATIVE: CASE EVENT DATE: 20230701
